FAERS Safety Report 6582262-8 (Version None)
Quarter: 2010Q1

REPORT INFORMATION
  Report Type: 
  Country: None (occurrence: None)
  Receive Date: 20100216
  Receipt Date: 20091109
  Transmission Date: 20100710
  Serious: No
  Sender: FDA-Public Use
  Company Number: A0816063A

PATIENT
  Age: 67 Year
  Sex: Female

DRUGS (4)
  1. VERAMYST [Suspect]
     Route: 045
     Dates: start: 20091101
  2. ZYRTEC [Concomitant]
  3. NEXIUM [Concomitant]
  4. ZOCOR [Concomitant]

REACTIONS (2)
  - EYE IRRITATION [None]
  - EYE SWELLING [None]
